FAERS Safety Report 7590293-4 (Version None)
Quarter: 2011Q3

REPORT INFORMATION
  Report Type: 
  Country: None (occurrence: None)
  Receive Date: 20110705
  Receipt Date: 20110624
  Transmission Date: 20111222
  Serious: Yes (Life-Threatening, Hospitalization, Other)
  Sender: FDA-Public Use
  Company Number: US-BAYER-2011-004779

PATIENT
  Age: 29 Year
  Sex: Female
  Weight: 99.773 kg

DRUGS (6)
  1. PROAIR HFA [Concomitant]
     Dosage: UNK
     Dates: start: 20100723
  2. IBUPROPION SR [Concomitant]
     Dosage: 150 MG, UNK
     Dates: start: 20100726
  3. DROSPIRENONE AND ETHINYL ESTRADIOL [Suspect]
     Indication: PRODUCT USED FOR UNKNOWN INDICATION
     Dosage: UNK
     Dates: start: 20100201, end: 20100701
  4. MOTRIN [Concomitant]
     Dosage: UNK
     Dates: start: 20100201
  5. IBUPROFEN [Concomitant]
     Dosage: 600 MG, UNK
     Dates: start: 20100207
  6. YAZ [Suspect]
     Indication: PRODUCT USED FOR UNKNOWN INDICATION
     Dosage: UNK
     Dates: start: 20100201, end: 20100701

REACTIONS (5)
  - DEEP VEIN THROMBOSIS [None]
  - GALLBLADDER DISORDER [None]
  - PAIN [None]
  - EMOTIONAL DISTRESS [None]
  - THROMBOSIS [None]
